FAERS Safety Report 9694866 (Version 2)
Quarter: 2013Q4

REPORT INFORMATION
  Report Type: Report from Study
  Country: MX (occurrence: MX)
  Receive Date: 20131119
  Receipt Date: 20131127
  Transmission Date: 20140711
  Serious: Yes (Death, Disabling)
  Sender: FDA-Public Use
  Company Number: MX-ROCHE-1303213

PATIENT
  Age: 63 Year
  Sex: Male
  Weight: 48 kg

DRUGS (1)
  1. XELODA [Suspect]
     Indication: METASTATIC GASTRIC CANCER
     Route: 048
     Dates: start: 201302, end: 20130628

REACTIONS (3)
  - Metastases to oesophagus [Fatal]
  - Dysphagia [Not Recovered/Not Resolved]
  - Weight decreased [Not Recovered/Not Resolved]
